FAERS Safety Report 8667471 (Version 2)
Quarter: 2013Q2

REPORT INFORMATION
  Report Type: Spontaneous
  Country: US (occurrence: None)
  Receive Date: 20120405
  Receipt Date: 20120628
  Transmission Date: 20140414
  Serious: Yes (Other)
  Sender: FDA-Public Use
  Company Number: PHHY2010US88576

PATIENT
  Age: 81 Year
  Sex: Female
  Weight: 53.1 kg

DRUGS (1)
  1. RECLAST [Suspect]
     Indication: OSTEOPOROSIS
     Dosage: 5 MG/ YEAR, INTRAVENOUS
     Route: 042
     Dates: start: 20101223, end: 20101223

REACTIONS (14)
  - SYNCOPE [None]
  - PAIN [None]
  - NAUSEA [None]
  - HEADACHE [None]
  - PARAESTHESIA [None]
  - CONSTIPATION [None]
  - DIZZINESS [None]
  - FATIGUE [None]
  - INFLUENZA LIKE ILLNESS [None]
  - MUSCLE SPASMS [None]
  - Bone pain [None]
  - Abdominal pain upper [None]
  - Malaise [None]
  - Rash [None]
